FAERS Safety Report 12161502 (Version 34)
Quarter: 2021Q4

REPORT INFORMATION
  Report Type: Other
  Country: CA (occurrence: None)
  Receive Date: 20160309
  Receipt Date: 20211231
  Transmission Date: 20220303
  Serious: Yes (Hospitalization, Other)
  Sender: FDA-Public Use
  Company Number: CA-ROCHE-1498769

PATIENT
  Age: 68 Year
  Sex: Female
  Weight: 66.7 kg

DRUGS (18)
  1. ACTEMRA [Suspect]
     Active Substance: TOCILIZUMAB
     Indication: Polychondritis
     Route: 042
     Dates: start: 20140903, end: 20160802
  2. ACTEMRA [Suspect]
     Active Substance: TOCILIZUMAB
     Route: 042
     Dates: start: 20180827, end: 20180827
  3. ACTEMRA [Suspect]
     Active Substance: TOCILIZUMAB
     Route: 042
     Dates: start: 20160830
  4. ACTEMRA [Suspect]
     Active Substance: TOCILIZUMAB
     Route: 042
     Dates: start: 20181009, end: 20191009
  5. ACTEMRA [Suspect]
     Active Substance: TOCILIZUMAB
     Dosage: ONGOING
     Route: 042
     Dates: start: 20181106, end: 20200421
  6. ACTEMRA [Suspect]
     Active Substance: TOCILIZUMAB
     Dosage: ONGOING
     Route: 042
     Dates: start: 20200519, end: 20210420
  7. ACTEMRA [Suspect]
     Active Substance: TOCILIZUMAB
     Route: 042
     Dates: start: 20210518
  8. VOLTAREN [Concomitant]
     Active Substance: DICLOFENAC SODIUM
  9. PREDNISONE [Concomitant]
     Active Substance: PREDNISONE
  10. AZATHIOPRINE [Concomitant]
     Active Substance: AZATHIOPRINE
  11. SYNTHROID [Concomitant]
     Active Substance: LEVOTHYROXINE SODIUM
  12. PULMICORT TURBUHALER [Concomitant]
     Active Substance: BUDESONIDE
  13. ZITHROMAX [Concomitant]
     Active Substance: AZITHROMYCIN DIHYDRATE
     Indication: Prophylaxis
     Dosage: PORPHYLAXIS FOR LUNG INFECTION, M, W, F
  14. FOLIC ACID [Concomitant]
     Active Substance: FOLIC ACID
  15. PRAVASTATIN [Concomitant]
     Active Substance: PRAVASTATIN
  16. FOSAMAX [Concomitant]
     Active Substance: ALENDRONATE SODIUM
  17. ASPIRIN [Concomitant]
     Active Substance: ASPIRIN
  18. CALCIUM [Concomitant]
     Active Substance: CALCIUM

REACTIONS (36)
  - Chondropathy [Unknown]
  - Dyspnoea [Not Recovered/Not Resolved]
  - Nerve compression [Unknown]
  - Cellulitis [Not Recovered/Not Resolved]
  - Cervical cord compression [Not Recovered/Not Resolved]
  - Deafness [Recovering/Resolving]
  - Nerve compression [Unknown]
  - Herpes zoster [Not Recovered/Not Resolved]
  - Paraesthesia [Not Recovered/Not Resolved]
  - Paraesthesia [Recovered/Resolved]
  - Gallbladder disorder [Unknown]
  - Vaginal haemorrhage [Not Recovered/Not Resolved]
  - Pancreatic cyst [Unknown]
  - Genital neoplasm malignant female [Unknown]
  - Candida infection [Recovered/Resolved]
  - Weight decreased [Recovered/Resolved]
  - Arthralgia [Not Recovered/Not Resolved]
  - Ear infection [Recovered/Resolved]
  - Rash [Not Recovered/Not Resolved]
  - Bursitis [Not Recovered/Not Resolved]
  - Pain in extremity [Not Recovered/Not Resolved]
  - Urinary tract infection [Unknown]
  - Abdominal discomfort [Unknown]
  - Vomiting [Unknown]
  - Fatigue [Not Recovered/Not Resolved]
  - Nasopharyngitis [Not Recovered/Not Resolved]
  - Confusional state [Unknown]
  - Amnesia [Unknown]
  - Rash papular [Unknown]
  - Pharyngitis [Recovered/Resolved]
  - Ear infection [Unknown]
  - Off label use [Unknown]
  - Uterine cancer [Unknown]
  - Joint swelling [Unknown]
  - C-reactive protein increased [Unknown]
  - Tracheal disorder [Unknown]

NARRATIVE: CASE EVENT DATE: 20141101
